FAERS Safety Report 6453067-3 (Version None)
Quarter: 2009Q4

REPORT INFORMATION
  Report Type: 
  Country: None (occurrence: None)
  Receive Date: 20091124
  Receipt Date: 20091029
  Transmission Date: 20100525
  Serious: No
  Sender: FDA-Public Use
  Company Number: US-ABBOTT-09P-163-0602414-00

PATIENT
  Sex: Female
  Weight: 102.6 kg

DRUGS (5)
  1. TRICOR [Suspect]
     Indication: BLOOD CHOLESTEROL INCREASED
     Dates: start: 20050101, end: 20090826
  2. TRICOR [Suspect]
     Dates: start: 20091004, end: 20091005
  3. REGULAR INSULIN [Concomitant]
     Indication: DIABETES MELLITUS
  4. METFORMIN HCL [Concomitant]
     Indication: DIABETES MELLITUS
  5. NPH INSULIN [Concomitant]
     Indication: DIABETES MELLITUS

REACTIONS (1)
  - MUSCULAR WEAKNESS [None]
